FAERS Safety Report 4377252-X (Version None)
Quarter: 2004Q2

REPORT INFORMATION
  Report Type: 
  Country: None (occurrence: None)
  Receive Date: 20040614
  Receipt Date: 20040614
  Transmission Date: 20050107
  Serious: Yes (Hospitalization)
  Sender: FDA-Public Use
  Company Number: None

PATIENT
  Age: 57 Year
  Sex: Male
  Weight: 99 kg

DRUGS (1)
  1. PAROXETINE HCL [Suspect]
     Dosage: 20 MG QD ORAL
     Route: 048
     Dates: start: 20040526, end: 20040602

REACTIONS (3)
  - ACIDOSIS HYPERCHLORAEMIC [None]
  - DEPRESSION [None]
  - INAPPROPRIATE ANTIDIURETIC HORMONE SECRETION [None]
